FAERS Safety Report 19512359 (Version 2)
Quarter: 2021Q3

REPORT INFORMATION
  Report Type: Spontaneous
  Country: US (occurrence: US)
  Receive Date: 20210709
  Receipt Date: 20210830
  Transmission Date: 20211014
  Serious: Yes (Other)
  Sender: FDA-Public Use
  Company Number: US-JNJFOC-20210703494

PATIENT
  Sex: Female

DRUGS (1)
  1. ELMIRON [Suspect]
     Active Substance: PENTOSAN POLYSULFATE SODIUM
     Indication: CYSTITIS INTERSTITIAL
     Dosage: 3 DOSES
     Route: 048
     Dates: start: 2007, end: 2015

REACTIONS (2)
  - Central vision loss [Unknown]
  - Vision blurred [Unknown]

NARRATIVE: CASE EVENT DATE: 2008
